FAERS Safety Report 22010683 (Version 1)
Quarter: 2023Q1

REPORT INFORMATION
  Report Type: Spontaneous
  Country: JP (occurrence: JP)
  Receive Date: 20230220
  Receipt Date: 20230220
  Transmission Date: 20230417
  Serious: Yes (Other)
  Sender: FDA-Public Use
  Company Number: JP-BAYER-2023A015597

PATIENT
  Age: 43 Year
  Sex: Male

DRUGS (2)
  1. AVELOX [Suspect]
     Active Substance: MOXIFLOXACIN HYDROCHLORIDE
     Indication: Sinusitis
     Dosage: UNK
     Dates: start: 20230201
  2. DIOVAN [Concomitant]
     Active Substance: VALSARTAN
     Dosage: 80MG

REACTIONS (5)
  - Shock [None]
  - Loss of consciousness [Recovered/Resolved]
  - Feeling abnormal [None]
  - Fall [None]
  - Contusion [None]

NARRATIVE: CASE EVENT DATE: 20230201
